FAERS Safety Report 6176016-4 (Version None)
Quarter: 2009Q2

REPORT INFORMATION
  Report Type: 
  Country: None (occurrence: None)
  Receive Date: 20090501
  Receipt Date: 20090427
  Transmission Date: 20091009
  Serious: Yes (Hospitalization)
  Sender: FDA-Public Use
  Company Number: GB-ROCHE-623179

PATIENT
  Age: 9 Year
  Sex: Male

DRUGS (10)
  1. MYCOPHENOLATE MOFETIL [Interacting]
     Indication: IMMUNOSUPPRESSION
     Route: 065
  2. PREDNISOLONE [Interacting]
     Indication: IMMUNOSUPPRESSION
     Route: 065
  3. RAPAMUNE [Interacting]
     Indication: IMMUNOSUPPRESSION
     Route: 065
  4. LAMIVUDINE [Suspect]
     Indication: HIV INFECTION
     Route: 065
  5. LAMIVUDINE [Suspect]
     Route: 065
  6. EFAVIRENZ [Concomitant]
     Indication: HIV INFECTION
  7. ZIDOVUDINE [Concomitant]
     Indication: HIV INFECTION
  8. RALTEGRAVIR [Concomitant]
  9. KIVEXA [Concomitant]
     Indication: HIV INFECTION
  10. ABACAVIR [Concomitant]
     Indication: HIV INFECTION

REACTIONS (11)
  - CACHEXIA [None]
  - CHOLESTASIS [None]
  - DISEASE RECURRENCE [None]
  - DRUG INEFFECTIVE [None]
  - DRUG INTERACTION [None]
  - HIV INFECTION [None]
  - HYPERLIPIDAEMIA [None]
  - HYPERTENSION [None]
  - MYOPATHY [None]
  - RENAL IMPAIRMENT [None]
  - TRANSPLANT REJECTION [None]
